FAERS Safety Report 12907012 (Version 1)
Quarter: 2016Q4

REPORT INFORMATION
  Report Type: Spontaneous
  Country: US (occurrence: US)
  Receive Date: 20161103
  Receipt Date: 20161103
  Transmission Date: 20170207
  Serious: No
  Sender: FDA-Public Use
  Company Number: PHEH2016US028411

PATIENT
  Age: 16 Year
  Sex: Male
  Weight: 34.74 kg

DRUGS (2)
  1. VOTRIENT [Suspect]
     Active Substance: PAZOPANIB HYDROCHLORIDE
     Indication: SOFT TISSUE SARCOMA
  2. VOTRIENT [Suspect]
     Active Substance: PAZOPANIB HYDROCHLORIDE
     Indication: MALIGNANT CONNECTIVE TISSUE NEOPLASM
     Dosage: 4 DF, QD
     Route: 048
     Dates: start: 20161023

REACTIONS (3)
  - Nausea [Unknown]
  - Somnolence [Unknown]
  - Ear infection [Unknown]

NARRATIVE: CASE EVENT DATE: 20161026
